FAERS Safety Report 11308037 (Version 1)
Quarter: 2015Q3

REPORT INFORMATION
  Report Type: Spontaneous
  Country: NL (occurrence: NL)
  Receive Date: 20150724
  Receipt Date: 20150724
  Transmission Date: 20151125
  Serious: Yes (Hospitalization)
  Sender: FDA-Public Use
  Company Number: NL-ASTRAZENECA-2015SE69431

PATIENT
  Age: 50 Year
  Sex: Female

DRUGS (30)
  1. DAXAS [Suspect]
     Active Substance: ROFLUMILAST
     Indication: CHRONIC OBSTRUCTIVE PULMONARY DISEASE
     Route: 048
     Dates: start: 201107, end: 2015
  2. AZITROMYCINE [Concomitant]
  3. CODEIN PHOSPHAS [Concomitant]
     Dosage: 10 MG
  4. ONBREZ BREEZHALER [Concomitant]
     Active Substance: INDACATEROL
     Dosage: 300 MG
     Route: 055
  5. MIRTAZAPINE. [Concomitant]
     Active Substance: MIRTAZAPINE
     Dosage: 15 MG
  6. PARACETAMOL [Concomitant]
     Active Substance: ACETAMINOPHEN
     Dosage: 500 MG
  7. SIMVASTATINE [Concomitant]
     Active Substance: SIMVASTATIN
     Dosage: 20 MG
  8. ALVESCO [Concomitant]
     Active Substance: CICLESONIDE
     Route: 055
  9. FUROSEMIDE. [Concomitant]
     Active Substance: FUROSEMIDE
  10. FUCITHALMIC [Concomitant]
     Active Substance: FUSIDIC ACID
     Dosage: EYE GEL
  11. SUMATRIPTAN. [Concomitant]
     Active Substance: SUMATRIPTAN
     Dosage: 100 MG
  12. PRAVASTATIN [Concomitant]
     Active Substance: PRAVASTATIN\PRAVASTATIN SODIUM
     Dosage: 40 MG
  13. ESOMEPRAZOLE [Concomitant]
     Active Substance: ESOMEPRAZOLE
     Dosage: 10 MG
  14. AVAMYS [Concomitant]
     Active Substance: FLUTICASONE FUROATE
  15. NIQUITIN [Concomitant]
     Active Substance: NICOTINE
     Dosage: PATCH, 14 MG/24 HOURS
  16. PANTOPRAZOLE [Concomitant]
     Active Substance: PANTOPRAZOLE SODIUM
     Dosage: 40 MG
  17. SALBUTAMOL [Concomitant]
     Active Substance: ALBUTEROL
     Dosage: 100 G
     Route: 055
  18. ALEVE [Concomitant]
     Active Substance: NAPROXEN SODIUM
     Dosage: 550MG
  19. IMIGRAN [Concomitant]
     Active Substance: SUMATRIPTAN SUCCINATE
  20. SPIRIVA [Concomitant]
     Active Substance: TIOTROPIUM BROMIDE MONOHYDRATE
     Dosage: 2.5 G
     Route: 055
  21. CHAMPIX [Concomitant]
     Active Substance: VARENICLINE TARTRATE
  22. VASELINE CETOMACROGOL [Concomitant]
  23. ACETYLCYSTEINE. [Concomitant]
     Active Substance: ACETYLCYSTEINE
  24. ASCAL BRISPER CARDIO NEURO [Concomitant]
     Dosage: EFFERVESCENT TABLET, 100 MG
  25. CETOMACROGOL W/GLYCEROL [Concomitant]
     Dosage: CREAM, 10 %
  26. DILTIAZEM [Concomitant]
     Active Substance: DILTIAZEM
  27. DEPO-PROVERA [Concomitant]
     Active Substance: MEDROXYPROGESTERONE ACETATE
  28. PREDNISOLON [Concomitant]
     Active Substance: PREDNISOLONE
     Dosage: 5MG
  29. ATIMOS [Concomitant]
     Active Substance: FORMOTEROL
     Route: 055
  30. PREDNISOLONUM [Concomitant]
     Dosage: 30 MG

REACTIONS (1)
  - Pulmonary hypertension [Unknown]

NARRATIVE: CASE EVENT DATE: 20150527
